FAERS Safety Report 11368578 (Version 1)
Quarter: 2015Q3

REPORT INFORMATION
  Report Type: Spontaneous
  Country: GB (occurrence: None)
  Receive Date: 20150810
  Receipt Date: 20150810
  Transmission Date: 20151125
  Serious: Yes (Death)
  Sender: FDA-Public Use
  Company Number: NSR_02190_2015

PATIENT
  Age: 25 Year
  Sex: Male
  Weight: 117 kg

DRUGS (10)
  1. ALCOHOL (ALCOHOL) [Suspect]
     Active Substance: ALCOHOL
     Indication: PRODUCT USED FOR UNKNOWN INDICATION
     Dosage: DF
  2. AMPHETAMINE (AMPHETAMINE) [Suspect]
     Active Substance: AMPHETAMINE
     Indication: PRODUCT USED FOR UNKNOWN INDICATION
     Dosage: DF
  3. MIRTAZAPINE (MIRTAZAPINE) [Suspect]
     Active Substance: MIRTAZAPINE
     Indication: PRODUCT USED FOR UNKNOWN INDICATION
     Dosage: DF
  4. NORDAZEPAM [Suspect]
     Active Substance: NORDAZEPAM
     Indication: PRODUCT USED FOR UNKNOWN INDICATION
     Dosage: DF
  5. OXAZEPAM (OXAZEPAM) [Suspect]
     Active Substance: OXAZEPAM
     Indication: PRODUCT USED FOR UNKNOWN INDICATION
     Dosage: DF
  6. ZOMORPH [Suspect]
     Active Substance: MORPHINE SULFATE
     Indication: PRODUCT USED FOR UNKNOWN INDICATION
     Dosage: 10 OR 30 MG; 3 STRIPS (8-24 TABS) [NOT THE PRESCRIBED AMOUNT]
  7. 9-TETRAHYDROCANNABINOL [Suspect]
     Active Substance: DRONABINOL
     Indication: PRODUCT USED FOR UNKNOWN INDICATION
     Dosage: DF
  8. 11-NOR-9-TETRAHYDRO-9-CANNABINOLIC ACID [Suspect]
     Active Substance: 11-NOR-9-CARBOXY-.DELTA-9-TETRAHYDROCANNABINOL
     Indication: PRODUCT USED FOR UNKNOWN INDICATION
     Dosage: DF
  9. TRAMADOL (TRAMADOL) [Suspect]
     Active Substance: TRAMADOL
     Indication: PRODUCT USED FOR UNKNOWN INDICATION
     Dosage: DF
  10. DIAZEPAM (DIAZEPAM) [Suspect]
     Active Substance: DIAZEPAM
     Indication: PRODUCT USED FOR UNKNOWN INDICATION
     Dosage: DF

REACTIONS (7)
  - Pulmonary congestion [None]
  - Left ventricular failure [None]
  - Pneumonia [None]
  - Hepatic steatosis [None]
  - Pulmonary oedema [None]
  - Unresponsive to stimuli [None]
  - Toxicity to various agents [None]
